FAERS Safety Report 7808368-0 (Version None)
Quarter: 2011Q4

REPORT INFORMATION
  Report Type: 
  Country: None (occurrence: None)
  Receive Date: 20111011
  Receipt Date: 20111011
  Transmission Date: 20120403
  Serious: Yes (Hospitalization)
  Sender: FDA-Public Use
  Company Number: None

PATIENT
  Age: 83 Year
  Sex: Male
  Weight: 87 kg

DRUGS (1)
  1. SOTALOL HCL [Suspect]
     Dosage: 80 MG BID PO
     Route: 048
     Dates: start: 20030318, end: 20110706

REACTIONS (3)
  - ACUTE MYOCARDIAL INFARCTION [None]
  - HEART RATE IRREGULAR [None]
  - ATRIOVENTRICULAR BLOCK [None]
